FAERS Safety Report 19788357 (Version 1)
Quarter: 2021Q3

REPORT INFORMATION
  Report Type: Spontaneous
  Country: US (occurrence: US)
  Receive Date: 20210903
  Receipt Date: 20210903
  Transmission Date: 20211014
  Serious: Yes (Hospitalization)
  Sender: FDA-Public Use
  Company Number: US-ELI_LILLY_AND_COMPANY-US202108011356

PATIENT
  Sex: Female

DRUGS (3)
  1. HUMALOG [Suspect]
     Active Substance: INSULIN LISPRO
     Dosage: 120 U, DAILY
     Route: 058
  2. HUMALOG [Suspect]
     Active Substance: INSULIN LISPRO
     Indication: DIABETES MELLITUS
     Dosage: 120 U, DAILY
     Route: 058
     Dates: start: 1991
  3. LANTUS [Concomitant]
     Active Substance: INSULIN GLARGINE
     Indication: DIABETES MELLITUS
     Dosage: 40 U, DAILY(AT NIGHT)

REACTIONS (7)
  - Skin discolouration [Unknown]
  - Gait disturbance [Not Recovered/Not Resolved]
  - Hypoacusis [Unknown]
  - Memory impairment [Unknown]
  - Pain in extremity [Unknown]
  - Thrombosis [Unknown]
  - Heart injury [Unknown]
